FAERS Safety Report 25141547 (Version 1)
Quarter: 2025Q1

REPORT INFORMATION
  Report Type: Spontaneous
  Country: UZ (occurrence: UZ)
  Receive Date: 20250331
  Receipt Date: 20250331
  Transmission Date: 20250408
  Serious: Yes (Other)
  Sender: AMGEN
  Company Number: UZ-AMGEN-UZBSP2025058849

PATIENT

DRUGS (2)
  1. XGEVA [Suspect]
     Active Substance: DENOSUMAB
     Indication: Bone giant cell tumour
     Route: 058
  2. XGEVA [Suspect]
     Active Substance: DENOSUMAB
     Route: 058

REACTIONS (2)
  - Bone giant cell tumour [Unknown]
  - Treatment failure [Unknown]
